FAERS Safety Report 5989194-4 (Version None)
Quarter: 2008Q4

REPORT INFORMATION
  Report Type: 
  Country: None (occurrence: None)
  Receive Date: 20081210
  Receipt Date: 20081128
  Transmission Date: 20090506
  Serious: Yes (Disabling)
  Sender: FDA-Public Use
  Company Number: GB-MERCK-0812GBR00003

PATIENT
  Age: 50 Year
  Sex: Male

DRUGS (9)
  1. ZOCOR [Suspect]
     Indication: DIABETES MELLITUS
     Route: 048
     Dates: start: 20080101, end: 20080101
  2. ZOCOR [Suspect]
     Route: 048
     Dates: start: 20080101, end: 20080101
  3. ZOCOR [Suspect]
     Indication: HYPERLIPIDAEMIA
     Route: 048
     Dates: start: 20080101, end: 20080101
  4. ZOCOR [Suspect]
     Route: 048
     Dates: start: 20080101, end: 20080101
  5. ASPIRIN [Concomitant]
     Route: 065
     Dates: start: 20040101
  6. GLIMEPIRIDE [Concomitant]
     Route: 065
     Dates: start: 20040101
  7. INSULIN DETEMIR [Concomitant]
     Route: 058
     Dates: start: 20050101
  8. METFORMIN [Concomitant]
     Route: 065
     Dates: start: 20040101
  9. INSULIN ASPART [Concomitant]
     Route: 058
     Dates: start: 20050101

REACTIONS (1)
  - PANIC ATTACK [None]
